FAERS Safety Report 17366038 (Version 1)
Quarter: 2020Q1

REPORT INFORMATION
  Report Type: Report from Study
  Country: IT (occurrence: IT)
  Receive Date: 20200204
  Receipt Date: 20200204
  Transmission Date: 20200409
  Serious: Yes (Hospitalization)
  Sender: FDA-Public Use
  Company Number: IT-MYLANLABS-2020M1011756

PATIENT
  Age: 29 Year
  Sex: Female
  Weight: 47.2 kg

DRUGS (8)
  1. CARBOPLATIN. [Suspect]
     Active Substance: CARBOPLATIN
     Indication: HER-2 POSITIVE BREAST CANCER
     Dosage: LAST DOSE OF CARBOPLATIN BEFORE THE SAE/ SERIOUS ADVERSE EVENT WAS ON 12/SEP/2019
     Route: 042
     Dates: start: 20190506, end: 20190912
  2. PACLITAXEL. [Suspect]
     Active Substance: PACLITAXEL
     Indication: HER-2 POSITIVE BREAST CANCER
     Dosage: LAST DOSE OF PACLITAXEL BEFORE THE SAE/ SERIOUS ADVERSE EVENT WAS ON 12/SEP/2019
     Route: 042
  3. TRASTUZUMAB. [Suspect]
     Active Substance: TRASTUZUMAB
     Indication: HER-2 POSITIVE BREAST CANCER
     Dosage: UNK
  4. CARBOPLATIN. [Suspect]
     Active Substance: CARBOPLATIN
     Indication: BREAST CANCER
     Dosage: UNK
  5. PACLITAXEL. [Suspect]
     Active Substance: PACLITAXEL
     Indication: BREAST CANCER
     Dosage: UNK
  6. PERTUZUMAB. [Suspect]
     Active Substance: PERTUZUMAB
     Indication: BREAST CANCER
     Dosage: UNK
  7. PERTUZUMAB. [Suspect]
     Active Substance: PERTUZUMAB
     Indication: HER-2 POSITIVE BREAST CANCER
     Dosage: RECEIVED TOTAL 6 CYCLES. LAST DOSE OF PERTUZUMAB BEFORE THE SAE/ SERIOUS ADVERSE EVENT WAS ON 12/SEP
     Route: 042
     Dates: start: 20190506
  8. TRASTUZUMAB. [Suspect]
     Active Substance: TRASTUZUMAB
     Indication: BREAST CANCER
     Dosage: NO OF CYCLES RECEIVED 6  LAST DOSE OF TRASTUZUMAB BEFORE THE SAE/ SERIOUS ADVERSE EVENT WAS ON 12/SE
     Route: 041
     Dates: start: 20190506

REACTIONS (1)
  - Post procedural haemorrhage [Recovered/Resolved]

NARRATIVE: CASE EVENT DATE: 20191106
